FAERS Safety Report 8054632-2 (Version None)
Quarter: 2012Q1

REPORT INFORMATION
  Report Type: 
  Country: None (occurrence: None)
  Receive Date: 20120119
  Receipt Date: 20120109
  Transmission Date: 20120608
  Serious: Yes (Hospitalization, Other)
  Sender: FDA-Public Use
  Company Number: BR-AMGEN-BRASP2012002244

PATIENT
  Age: 58 Year
  Sex: Female
  Weight: 115 kg

DRUGS (1)
  1. ENBREL [Suspect]
     Indication: RHEUMATOID ARTHRITIS
     Dosage: 25 MG, 2X/WEEK
     Route: 058
     Dates: start: 20091001

REACTIONS (6)
  - ERYSIPELAS [None]
  - NAUSEA [None]
  - CHOLELITHIASIS [None]
  - BLOOD GLUCOSE DECREASED [None]
  - RENAL IMPAIRMENT [None]
  - BLOOD PRESSURE ABNORMAL [None]
